FAERS Safety Report 6251822-6 (Version None)
Quarter: 2009Q2

REPORT INFORMATION
  Report Type: 
  Country: None (occurrence: None)
  Receive Date: 20090630
  Receipt Date: 20090623
  Transmission Date: 20091009
  Serious: Yes (Hospitalization)
  Sender: FDA-Public Use
  Company Number: FR-ABBOTT-09P-056-0581620-00

PATIENT
  Age: 62 Year
  Sex: Male

DRUGS (4)
  1. MONOZECLAR [Suspect]
     Indication: INFLUENZA
     Route: 048
     Dates: start: 20090416, end: 20090424
  2. TEGRETOL [Suspect]
     Indication: NEUROPATHY PERIPHERAL
     Route: 048
     Dates: start: 20090301, end: 20090429
  3. TOPLEXIL [Suspect]
     Indication: INFLUENZA
     Route: 048
     Dates: start: 20090416, end: 20090424
  4. DERINOX [Suspect]
     Indication: INFLUENZA
     Route: 045
     Dates: start: 20090416, end: 20090424

REACTIONS (4)
  - CONJUNCTIVITIS [None]
  - DRUG RASH WITH EOSINOPHILIA AND SYSTEMIC SYMPTOMS [None]
  - LYMPHADENOPATHY [None]
  - MOUTH ULCERATION [None]
